FAERS Safety Report 9197199 (Version 1)
Quarter: 2013Q1

REPORT INFORMATION
  Report Type: Spontaneous
  Country: US (occurrence: None)
  Receive Date: 20120709
  Receipt Date: 20120709
  Transmission Date: 20140127
  Serious: No
  Sender: FDA-Public Use
  Company Number: 2012HGS-003560

PATIENT
  Age: 40 Year
  Sex: Female
  Weight: 154.22 kg

DRUGS (22)
  1. BENLYSTA [Suspect]
     Indication: SYSTEMIC LUPUS ERYTHEMATOSUS
     Dosage: 1 IN 14  D
     Route: 041
     Dates: start: 20120419
  2. PLAQUENIL (HYDROXYCHLOROQUINE SULFATE) (HYDROXYCHLOROQUINE SULFATE) [Concomitant]
  3. CELLCEPT (MYCOPHENOLATE MOFETIL) (MYCOPHENOLATE MOFETIL) [Concomitant]
  4. METFORMIN (METFORMIN) (METFORMIN) [Concomitant]
  5. BACLOFEN (BACLOFEN) (BACLOFEN) [Concomitant]
  6. MS CONTIN (MORPHINE SULFATE) (MORPHINE SULFATE) [Concomitant]
  7. PREDNISONE (PREDNISONE) [Concomitant]
  8. RANITIDINE (RANITIDINE) (RANITIDINE) [Concomitant]
  9. CALCIUM (CALCIUM) (CALCIUM) [Concomitant]
  10. VITAMIN C (ASCORBIC ACID) (ASCORBIC ACID) [Concomitant]
  11. PLAVIX (CLOPIDOGREL BISULFATE) (CLOPIDOGREL BISULFATE) [Concomitant]
  12. ALDACTONE (SPIRONOLACTONE) (SPIRONOLACTONE) [Concomitant]
  13. PROPRANOLOL (PROPRANOLOL) (PROPRANOLOL) [Concomitant]
  14. PRAVASTATIN (PRAVASTATIN) (PRAVASTATIN) [Concomitant]
  15. ACIPHEX (RABEPRAZOLE SODIUM) (RABEPRAZOLE SODIUM) [Concomitant]
  16. RECLAST (ZOLEDRONIC ACID) (ZOLEDRONIC ACID) [Concomitant]
  17. ZOFRAN (ONDANSETRON) (ONDANSETRON) [Concomitant]
  18. COMPAZINE (PROCHLORPERAZINE) (PROCHLORPERAZINE) [Concomitant]
  19. DULCOLAX (BISACODYL) (BISACODYL) [Concomitant]
  20. DEPO-PROVERA (MEDROXYPROGESTERONE ACETATE) (MEDROXYPROGESTERONE ACETATE) [Concomitant]
  21. FENTORA (FENTANYL CITRATE) (PENTANYL CITRATE) [Concomitant]
  22. GABAPENTIN (GABAPENTIN) (GABAPENTIN [Concomitant]

REACTIONS (3)
  - Fatigue [None]
  - Somnolence [None]
  - Diarrhoea [None]
